FAERS Safety Report 17202489 (Version 1)
Quarter: 2019Q4

REPORT INFORMATION
  Report Type: Spontaneous
  Country: US (occurrence: US)
  Receive Date: 20191203
  Receipt Date: 20191203
  Transmission Date: 20200122
  Serious: No
  Sender: FDA-Public Use
  Company Number: None

PATIENT
  Age: 81 Year
  Sex: Female
  Weight: 58.51 kg

DRUGS (2)
  1. CENTRUM SILVER VITAMINS [Concomitant]
  2. MYRBETRIQ [Suspect]
     Active Substance: MIRABEGRON
     Indication: HYPERTONIC BLADDER
     Dosage: ?          QUANTITY:25 MG MILLIGRAM(S);??
     Route: 048

REACTIONS (8)
  - Tongue blistering [None]
  - Back pain [None]
  - Headache [None]
  - Dry mouth [None]
  - Cheilitis [None]
  - Tongue erythema [None]
  - Dizziness [None]
  - Oral mucosal erythema [None]

NARRATIVE: CASE EVENT DATE: 20190813
